FAERS Safety Report 19893975 (Version 1)
Quarter: 2021Q3

REPORT INFORMATION
  Report Type: Spontaneous
  Country: BR (occurrence: BR)
  Receive Date: 20210928
  Receipt Date: 20210928
  Transmission Date: 20211014
  Serious: Yes (Other)
  Sender: FDA-Public Use
  Company Number: BR-PFIZER INC-2021852609

PATIENT
  Sex: Male

DRUGS (1)
  1. TALIGLUCERASE ALFA [Suspect]
     Active Substance: TALIGLUCERASE ALFA
     Dosage: 3600.0 UNITS 2X FOR MONTH
     Route: 042

REACTIONS (2)
  - Loss of therapeutic response [Not Recovered/Not Resolved]
  - Thrombocytopenia [Not Recovered/Not Resolved]
